FAERS Safety Report 25169586 (Version 2)
Quarter: 2025Q2

REPORT INFORMATION
  Report Type: Spontaneous
  Country: US (occurrence: US)
  Receive Date: 20250407
  Receipt Date: 20250414
  Transmission Date: 20250716
  Serious: Yes (Other)
  Sender: PFIZER
  Company Number: US-PFIZER INC-202500070585

PATIENT
  Age: 59 Year
  Sex: Male

DRUGS (2)
  1. GEMCITABINE HYDROCHLORIDE [Suspect]
     Active Substance: GEMCITABINE HYDROCHLORIDE
  2. ABRAXANE [Suspect]
     Active Substance: PACLITAXEL

REACTIONS (3)
  - Malignant neoplasm progression [Unknown]
  - Discomfort [Unknown]
  - Fatigue [Unknown]
